FAERS Safety Report 20168428 (Version 3)
Quarter: 2021Q4

REPORT INFORMATION
  Report Type: Report from Study
  Country: US (occurrence: None)
  Receive Date: 20211210
  Receipt Date: 20211223
  Transmission Date: 20220303
  Serious: Yes (Hospitalization)
  Sender: FDA-Public Use
  Company Number: US-ROCHE-2907082

PATIENT
  Age: 74 Year
  Sex: Male

DRUGS (37)
  1. VENETOCLAX [Suspect]
     Active Substance: VENETOCLAX
     Indication: Chronic myelomonocytic leukaemia
     Dosage: D1-D14?ON 05/SEP/2021, HE RECEIVED THE MOST RECENT DOSE OF VENETOCLAX PRIOR TO SERIOUS ADVERSE EVENT
     Route: 048
     Dates: start: 20210827
  2. VENETOCLAX [Suspect]
     Active Substance: VENETOCLAX
     Route: 048
     Dates: start: 20211022, end: 20211023
  3. VENETOCLAX [Suspect]
     Active Substance: VENETOCLAX
     Route: 048
     Dates: start: 20211129
  4. AZACITIDINE [Suspect]
     Active Substance: AZACITIDINE
     Indication: Chronic myelomonocytic leukaemia
     Dosage: D1 D5?ON 29/AUG/2021, HE RECEIVED THE MOST RECENT DOSE OF AZACITIDINE PRIOR TO SERIOUS ADVERSE VENT
     Route: 042
     Dates: start: 20210825
  5. AZACITIDINE [Suspect]
     Active Substance: AZACITIDINE
     Route: 042
     Dates: start: 20211022, end: 20211023
  6. AZACITIDINE [Suspect]
     Active Substance: AZACITIDINE
     Dosage: ON 03/DEC/2021, RECEIVED MOST RECENT DOSE OF AZACITIDINE.
     Route: 042
     Dates: start: 20211129
  7. ALPHA LIPOIC ACID [Concomitant]
     Active Substance: .ALPHA.-LIPOIC ACID
  8. AMLODIPINE BESYLATE [Concomitant]
     Active Substance: AMLODIPINE BESYLATE
  9. CALCIUM CARBONATE\CHOLECALCIFEROL [Concomitant]
     Active Substance: CALCIUM CARBONATE\CHOLECALCIFEROL
  10. CALCIUM CITRATE [Concomitant]
     Active Substance: CALCIUM CITRATE
  11. CHOLECALCIFEROL [Concomitant]
     Active Substance: CHOLECALCIFEROL
  12. CYANOCOBALAMIN [Concomitant]
     Active Substance: CYANOCOBALAMIN
  13. CYCLOBENZAPRINE HYDROCHLORIDE [Concomitant]
     Active Substance: CYCLOBENZAPRINE HYDROCHLORIDE
  14. DAPSONE [Concomitant]
     Active Substance: DAPSONE
  15. EPOETIN ALFA [Concomitant]
     Active Substance: ERYTHROPOIETIN
  16. GABAPENTIN [Concomitant]
     Active Substance: GABAPENTIN
  17. GLIPIZIDE [Concomitant]
     Active Substance: GLIPIZIDE
  18. HYDROXYZINE HYDROCHLORIDE [Concomitant]
     Active Substance: HYDROXYZINE HYDROCHLORIDE
  19. INSULIN NOS [Concomitant]
     Active Substance: INSULIN NOS
  20. ISAVUCONAZONIUM SULFATE [Concomitant]
     Active Substance: ISAVUCONAZONIUM SULFATE
  21. LEVOCETIRIZINE DIHYDROCHLORIDE [Concomitant]
     Active Substance: LEVOCETIRIZINE DIHYDROCHLORIDE
  22. LOPERAMIDE HYDROCHLORIDE [Concomitant]
     Active Substance: LOPERAMIDE HYDROCHLORIDE
  23. MAGNESIUM OXIDE [Concomitant]
     Active Substance: MAGNESIUM OXIDE
  24. METFORMIN HYDROCHLORIDE [Concomitant]
     Active Substance: METFORMIN HYDROCHLORIDE
  25. OMEPRAZOLE [Concomitant]
     Active Substance: OMEPRAZOLE
  26. ROPINIROLE HYDROCHLORIDE [Concomitant]
     Active Substance: ROPINIROLE HYDROCHLORIDE
  27. TACROLIMUS [Concomitant]
     Active Substance: TACROLIMUS
  28. TRAMADOL HCL [Concomitant]
     Active Substance: TRAMADOL HYDROCHLORIDE
  29. VALACYCLOVIR HYDROCHLORIDE [Concomitant]
     Active Substance: VALACYCLOVIR HYDROCHLORIDE
  30. ZOLPIDEM TARTRATE [Concomitant]
     Active Substance: ZOLPIDEM TARTRATE
  31. NORVASC [Concomitant]
     Active Substance: AMLODIPINE BESYLATE
  32. NPH INSULIN [Concomitant]
     Active Substance: INSULIN BEEF
  33. 2,3-DIMERCAPTOSUCCINIC ACID [Concomitant]
     Active Substance: 2,3-DIMERCAPTOSUCCINIC ACID
  34. NOVOLIN R [Concomitant]
     Active Substance: INSULIN HUMAN
  35. REQUIP [Concomitant]
     Active Substance: ROPINIROLE HYDROCHLORIDE
  36. VALTREX [Concomitant]
     Active Substance: VALACYCLOVIR HYDROCHLORIDE
  37. CEFPODOXIME [Concomitant]
     Active Substance: CEFPODOXIME

REACTIONS (3)
  - Pneumonia [Recovered/Resolved]
  - Pulmonary oedema [Recovered/Resolved]
  - Hypertension [Recovered/Resolved]

NARRATIVE: CASE EVENT DATE: 20210906
